FAERS Safety Report 5836411-7 (Version None)
Quarter: 2008Q3

REPORT INFORMATION
  Report Type: 
  Country: None (occurrence: None)
  Receive Date: 20080806
  Receipt Date: 20080806
  Transmission Date: 20090109
  Serious: Yes (Other)
  Sender: FDA-Public Use
  Company Number: None

PATIENT
  Age: 46 Year
  Sex: Female
  Weight: 62.5964 kg

DRUGS (6)
  1. SURGILUBE [Suspect]
  2. SYNTHROID [Concomitant]
  3. LEVOTHYROXINE SODIUM [Concomitant]
  4. PROGESTERONE SR [Concomitant]
  5. METHYLETESTERONE [Concomitant]
  6. TESTOSTERONE [Concomitant]

REACTIONS (1)
  - UNEVALUABLE EVENT [None]
